FAERS Safety Report 4607071-8 (Version None)
Quarter: 2005Q1

REPORT INFORMATION
  Report Type: 
  Country: None (occurrence: None)
  Receive Date: 20050314
  Receipt Date: 20050307
  Transmission Date: 20050727
  Serious: Yes (Hospitalization)
  Sender: FDA-Public Use
  Company Number: US-BRISTOL-MYERS SQUIBB COMPANY-12888442

PATIENT
  Age: 77 Year
  Sex: Male

DRUGS (13)
  1. CETUXIMAB [Suspect]
     Indication: NON-SMALL CELL LUNG CANCER
     Dosage: INITIATED ON 04-JAN-2005 (CYCLE 2)
     Route: 042
     Dates: start: 20050208, end: 20050208
  2. CARBOPLATIN [Suspect]
     Indication: NON-SMALL CELL LUNG CANCER
     Dosage: INITIATED ON 04-JAN-2005 (CYCLE 2)
     Route: 042
     Dates: start: 20050125, end: 20050125
  3. TAXOL [Suspect]
     Indication: NON-SMALL CELL LUNG CANCER
     Dosage: INITIATED ON 04-JAN-2005 (CYCLE 2)
     Route: 042
     Dates: start: 20050125, end: 20050125
  4. CISPLATIN [Suspect]
  5. GEMZAR [Suspect]
  6. CLEOCIN T [Concomitant]
     Dates: start: 20050114
  7. TEGRETOL [Concomitant]
     Dates: start: 19930101
  8. VICODIN [Concomitant]
  9. PRAZOSIN HCL [Concomitant]
  10. COUMADIN [Concomitant]
     Dates: start: 20050210
  11. LOVENOX [Concomitant]
     Dates: start: 20050210
  12. EX-LAX [Concomitant]
     Dates: start: 20050110
  13. DULCOLAX [Concomitant]
     Dates: start: 20050110

REACTIONS (3)
  - ANAEMIA [None]
  - GENERAL PHYSICAL HEALTH DETERIORATION [None]
  - THROMBOCYTOPENIA [None]
